FAERS Safety Report 4912944-2 (Version None)
Quarter: 2006Q1

REPORT INFORMATION
  Report Type: 
  Country: None (occurrence: None)
  Receive Date: 20060215
  Receipt Date: 20060205
  Transmission Date: 20060701
  Serious: Yes (Hospitalization)
  Sender: FDA-Public Use
  Company Number: US-AVENTIS-200611385US

PATIENT
  Sex: Female
  Weight: 172.27 kg

DRUGS (7)
  1. LANTUS [Suspect]
     Indication: DIABETES MELLITUS NON-INSULIN-DEPENDENT
     Dosage: DOSE UNIT: UNITS
     Dates: start: 20060101
  2. OPTICLIK (INSULIN INJECTION PEN) [Suspect]
     Dates: start: 20060101
  3. MORPHINE [Concomitant]
     Dosage: DOSE: UNKNOWN
  4. HYDROMORPHONE HCL [Concomitant]
     Dosage: DOSE: UNKNOWN
  5. VITAMIN B-12 [Concomitant]
     Dosage: DOSE: UNKNOWN
  6. NEXIUM [Concomitant]
     Dosage: DOSE: UNKNOWN
  7. ACIPHEX [Concomitant]
     Dosage: DOSE: UNKNOWN

REACTIONS (5)
  - ATRIAL FIBRILLATION [None]
  - BLOOD GLUCOSE INCREASED [None]
  - DEVICE FAILURE [None]
  - OEDEMA PERIPHERAL [None]
  - PHARMACEUTICAL PRODUCT COMPLAINT [None]
